FAERS Safety Report 10160193 (Version 2)
Quarter: 2014Q2

REPORT INFORMATION
  Report Type: Report from Study
  Country: US (occurrence: US)
  Receive Date: 20140508
  Receipt Date: 20140512
  Transmission Date: 20141212
  Serious: Yes (Death)
  Sender: FDA-Public Use
  Company Number: PHEH2014US009291

PATIENT
  Age: 51 Year
  Sex: Female

DRUGS (10)
  1. AFINITOR [Suspect]
     Indication: PANCREATIC CARCINOMA
     Dosage: 5 MG, QD
     Dates: start: 20130515
  2. CREON [Concomitant]
  3. DIAZEPAM [Concomitant]
  4. LEXAPRO [Concomitant]
     Dosage: UNK
  5. MIRALAX [Concomitant]
  6. PERCOCET [Concomitant]
  7. PREVACID [Concomitant]
  8. PHOCHLORPER [Concomitant]
  9. SENOKOT [Concomitant]
  10. ZOFRAN [Concomitant]

REACTIONS (2)
  - Thrombotic thrombocytopenic purpura [Fatal]
  - Malignant neoplasm progression [Fatal]
